FAERS Safety Report 6311499-8 (Version None)
Quarter: 2009Q3

REPORT INFORMATION
  Report Type: 
  Country: None (occurrence: None)
  Receive Date: 20090817
  Receipt Date: 20090810
  Transmission Date: 20100115
  Serious: Yes (Life-Threatening)
  Sender: FDA-Public Use
  Company Number: JP-BAYER-200912610BYL

PATIENT
  Age: 49 Year
  Sex: Male
  Weight: 60 kg

DRUGS (3)
  1. NEXAVAR [Suspect]
     Indication: HEPATIC CANCER STAGE IV
     Dosage: TOTAL DAILY DOSE: 800 MG  UNIT DOSE: 200 MG
     Route: 048
     Dates: start: 20090711, end: 20090724
  2. NEXAVAR [Suspect]
     Dosage: UNIT DOSE: 200 MG
     Route: 048
     Dates: start: 20090804
  3. UREPEARL [Concomitant]
     Indication: PROPHYLAXIS
     Route: 061
     Dates: start: 20090711

REACTIONS (6)
  - ALOPECIA [None]
  - DECREASED APPETITE [None]
  - DIARRHOEA [None]
  - ERYTHEMA MULTIFORME [None]
  - FATIGUE [None]
  - PALMAR-PLANTAR ERYTHRODYSAESTHESIA SYNDROME [None]
